FAERS Safety Report 5022079-9 (Version None)
Quarter: 2006Q2

REPORT INFORMATION
  Report Type: 
  Country: None (occurrence: None)
  Receive Date: 20060605
  Receipt Date: 20060525
  Transmission Date: 20061013
  Serious: Yes (Hospitalization)
  Sender: FDA-Public Use
  Company Number: TCI2006A01772

PATIENT
  Age: 61 Year
  Sex: Male

DRUGS (10)
  1. ACTOS [Suspect]
     Indication: DIABETES MELLITUS
     Dosage: SEE IMAGE
     Route: 048
     Dates: start: 20050510, end: 20060214
  2. ACTOS [Suspect]
     Indication: DIABETES MELLITUS
     Dosage: SEE IMAGE
     Route: 048
     Dates: start: 20060215, end: 20060221
  3. BASEN TABLETS 0.2 (VOGLIBOSE) [Suspect]
     Indication: DIABETES MELLITUS
     Dosage: SEE IMAGE
     Route: 048
     Dates: start: 20040622, end: 20040719
  4. BASEN TABLETS 0.2 (VOGLIBOSE) [Suspect]
     Indication: DIABETES MELLITUS
     Dosage: SEE IMAGE
     Route: 048
     Dates: start: 20040720, end: 20040802
  5. BASEN TABLETS 0.2 (VOGLIBOSE) [Suspect]
     Indication: DIABETES MELLITUS
     Dosage: SEE IMAGE
     Route: 048
     Dates: start: 20040803, end: 20060401
  6. AMARYL [Concomitant]
  7. URSO 250 [Concomitant]
  8. KELNAC (PLAUNOTOL) [Concomitant]
  9. EXCELASE (ENZYMES NOS) [Concomitant]
  10. INSULIN [Concomitant]

REACTIONS (11)
  - BLOOD GLUCOSE INCREASED [None]
  - CEREBROVASCULAR DISORDER [None]
  - DEPRESSED LEVEL OF CONSCIOUSNESS [None]
  - ELECTROENCEPHALOGRAM ABNORMAL [None]
  - GENERAL PHYSICAL HEALTH DETERIORATION [None]
  - GLYCOSYLATED HAEMOGLOBIN INCREASED [None]
  - HYPERAMMONAEMIA [None]
  - METASTASES TO LIVER [None]
  - REFUSAL OF TREATMENT BY PATIENT [None]
  - THERAPEUTIC RESPONSE DECREASED [None]
  - VOMITING [None]
